FAERS Safety Report 5103054-2 (Version None)
Quarter: 2006Q3

REPORT INFORMATION
  Report Type: 
  Country: None (occurrence: None)
  Receive Date: 20060907
  Receipt Date: 20060823
  Transmission Date: 20061208
  Serious: Yes (Other)
  Sender: FDA-Public Use
  Company Number: 14577

PATIENT
  Age: 51 Year
  Sex: Female
  Weight: 60 kg

DRUGS (6)
  1. PACLITAXEL [Suspect]
     Indication: BREAST CANCER
     Dosage: 290 MG PER_CYCLE IV
     Route: 042
     Dates: start: 20060530, end: 20060530
  2. PACLITAXEL [Suspect]
     Indication: BREAST CANCER
     Dosage: 290 MG IV
     Route: 042
     Dates: start: 20060629, end: 20060629
  3. PACLITAXEL [Suspect]
     Indication: BREAST CANCER
     Dosage: 290 MG IV
     Route: 042
     Dates: start: 20060721, end: 20060721
  4. PREGABALINE [Concomitant]
  5. HERCEPTIN [Concomitant]
  6. PACLITAXEL [Suspect]

REACTIONS (3)
  - BACK PAIN [None]
  - HYPERSENSITIVITY [None]
  - LOSS OF PROPRIOCEPTION [None]
